FAERS Safety Report 9759733 (Version 2)
Quarter: 2013Q4

REPORT INFORMATION
  Report Type: Spontaneous
  Country: US (occurrence: US)
  Receive Date: 20131216
  Receipt Date: 20131216
  Transmission Date: 20140711
  Serious: Yes (Hospitalization)
  Sender: FDA-Public Use
  Company Number: US-GILEAD-2010-0029146

PATIENT
  Sex: Female
  Weight: 107.95 kg

DRUGS (9)
  1. LETAIRIS [Suspect]
     Indication: PULMONARY ARTERIAL HYPERTENSION
     Route: 048
     Dates: start: 20091217
  2. PLAVIX [Concomitant]
  3. FUROSEMIDE [Concomitant]
  4. LISINOPRIL [Concomitant]
  5. SOTALOL [Concomitant]
  6. GLIPIZIDE [Concomitant]
  7. NOVOLOG [Concomitant]
  8. BENZONATATE [Concomitant]
  9. LEVOTHYROXINE [Concomitant]

REACTIONS (2)
  - Dyspnoea [Unknown]
  - Fluid overload [Unknown]
